FAERS Safety Report 14877441 (Version 3)
Quarter: 2018Q2

REPORT INFORMATION
  Report Type: Report from Study
  Country: JP (occurrence: JP)
  Receive Date: 20180510
  Receipt Date: 20180625
  Transmission Date: 20180711
  Serious: Yes (Other)
  Sender: FDA-Public Use
  Company Number: JP-BEH-2018090531

PATIENT
  Age: 88 Year
  Sex: Female
  Weight: 37 kg

DRUGS (17)
  1. BERIPLEX P/N [Suspect]
     Active Substance: COAGULATION FACTOR IX HUMAN\COAGULATION FACTOR VII HUMAN\COAGULATION FACTOR X HUMAN\PROTEIN C\PROTEIN S HUMAN\PROTHROMBIN
     Indication: HAEMORRHAGE
     Dosage: 1000 IU, UNK
     Route: 042
     Dates: start: 20171212
  2. CEFTRIAXONE. [Concomitant]
     Active Substance: CEFTRIAXONE
     Indication: SURGERY
     Dosage: UNK
     Route: 065
     Dates: start: 20171212, end: 20171212
  3. SOLULACT [Concomitant]
     Indication: SURGERY
     Dosage: UNK
     Route: 065
     Dates: start: 20171212, end: 20171212
  4. NICARDIPINE [Concomitant]
     Active Substance: NICARDIPINE
     Dosage: UNK
     Route: 065
     Dates: start: 20171212, end: 20171212
  5. FERROMIA [Concomitant]
     Active Substance: SODIUM FERROUS CITRATE
     Route: 048
  6. BERIPLEX P/N [Suspect]
     Active Substance: COAGULATION FACTOR IX HUMAN\COAGULATION FACTOR VII HUMAN\COAGULATION FACTOR X HUMAN\PROTEIN C\PROTEIN S HUMAN\PROTHROMBIN
     Indication: SURGERY
     Dosage: 1000 IU, TOT
     Route: 042
  7. SOLDEM [Concomitant]
     Active Substance: DEXTROSE\POTASSIUM CHLORIDE\SODIUM CHLORIDE\SODIUM LACTATE
     Indication: SURGERY
     Dosage: UNK
     Route: 065
     Dates: start: 20171213, end: 20171214
  8. SERENACE [Concomitant]
     Active Substance: HALOPERIDOL
     Indication: POST PROCEDURAL HAEMATOMA
     Dosage: UNK
     Route: 048
     Dates: start: 20171214, end: 20171229
  9. CEFAZOLIN [Concomitant]
     Active Substance: CEFAZOLIN
     Indication: SURGERY
     Dosage: UNK
     Route: 065
     Dates: start: 20171213, end: 20171214
  10. WARFARIN POTASSIUM [Concomitant]
     Active Substance: WARFARIN POTASSIUM
     Indication: ATRIAL FIBRILLATION
     Dosage: 1 MG, UNK
     Route: 048
     Dates: start: 20171211, end: 20171230
  11. WARFARIN POTASSIUM [Concomitant]
     Active Substance: WARFARIN POTASSIUM
     Indication: DEEP VEIN THROMBOSIS
  12. ALDACTONE [Concomitant]
     Active Substance: SPIRONOLACTONE
     Route: 048
  13. HORIZON [Concomitant]
     Active Substance: DIAZEPAM
     Indication: POST PROCEDURAL HAEMATOMA
     Dosage: UNK
     Route: 065
     Dates: start: 20171213, end: 20171215
  14. HORIZON [Concomitant]
     Active Substance: DIAZEPAM
     Indication: SUBDURAL HAEMATOMA
  15. SERENACE [Concomitant]
     Active Substance: HALOPERIDOL
     Indication: SUBDURAL HAEMATOMA
  16. RHYTHMY [Concomitant]
     Active Substance: RILMAZAFONE HYDROCHLORIDE
     Dosage: UNK
     Route: 048
     Dates: start: 20171221, end: 20171223
  17. ARICEPT [Concomitant]
     Active Substance: DONEPEZIL HYDROCHLORIDE
     Route: 048

REACTIONS (1)
  - Deep vein thrombosis [Recovering/Resolving]

NARRATIVE: CASE EVENT DATE: 20171222
